FAERS Safety Report 6109199-2 (Version None)
Quarter: 2009Q1

REPORT INFORMATION
  Report Type: 
  Country: None (occurrence: None)
  Receive Date: 20090310
  Receipt Date: 20090226
  Transmission Date: 20090719
  Serious: Yes (Other)
  Sender: FDA-Public Use
  Company Number: PHHY2009GB07207

PATIENT

DRUGS (1)
  1. ELIDEL [Suspect]
     Indication: DERMATITIS
     Dosage: UNK
     Route: 061

REACTIONS (4)
  - CONDITION AGGRAVATED [None]
  - DERMATITIS [None]
  - RASH [None]
  - ROSACEA [None]
